FAERS Safety Report 15396638 (Version 1)
Quarter: 2018Q3

REPORT INFORMATION
  Report Type: Spontaneous
  Country: US (occurrence: US)
  Receive Date: 20180918
  Receipt Date: 20180918
  Transmission Date: 20181010
  Serious: No
  Sender: FDA-Public Use
  Company Number: US-VERTEX PHARMACEUTICALS-2018-006661

PATIENT
  Age: 14 Year
  Sex: Male

DRUGS (32)
  1. URSODIOL. [Concomitant]
     Active Substance: URSODIOL
  2. COLISTIMETHATE                     /00013204/ [Concomitant]
     Active Substance: COLISTIMETHATE SODIUM
  3. FLOVENT [Concomitant]
     Active Substance: FLUTICASONE PROPIONATE
  4. CEFDINIR. [Concomitant]
     Active Substance: CEFDINIR
  5. ZENPEP [Concomitant]
     Active Substance: PANCRELIPASE AMYLASE\PANCRELIPASE LIPASE\PANCRELIPASE PROTEASE
  6. ONDANSETRAN [Concomitant]
     Active Substance: ONDANSETRON HYDROCHLORIDE
  7. HYPERSAL [Concomitant]
  8. KITABIS PAK [Concomitant]
     Active Substance: TOBRAMYCIN
  9. SYMDEKO [Suspect]
     Active Substance: IVACAFTOR\TEZACAFTOR
     Indication: CYSTIC FIBROSIS
     Dosage: 100 MG TEZACAFTOR/150 MG IVACAFTOR AM; 150 MG IVACAFTOR PM
     Route: 048
     Dates: start: 20180424
  10. ARIPIPRAZOLE. [Concomitant]
     Active Substance: ARIPIPRAZOLE
  11. PULMOZYME [Concomitant]
     Active Substance: DORNASE ALFA
  12. MILK THISTLE PLUS                  /08512201/ [Concomitant]
  13. ALENDRONATE [Concomitant]
     Active Substance: ALENDRONATE SODIUM
  14. SMZ?TMP [Concomitant]
     Active Substance: SULFAMETHOXAZOLE\TRIMETHOPRIM
  15. OSELTAMIVIR [Concomitant]
     Active Substance: OSELTAMIVIR
  16. OMEGA 3                            /01333901/ [Concomitant]
     Active Substance: FISH OIL\TOCOPHEROL
  17. VYVANSE [Concomitant]
     Active Substance: LISDEXAMFETAMINE DIMESYLATE
  18. VENTOLIN HFA [Concomitant]
     Active Substance: ALBUTEROL SULFATE
  19. DIPHENHYDRAMINE. [Concomitant]
     Active Substance: DIPHENHYDRAMINE
  20. HIZENTRA [Concomitant]
     Active Substance: HUMAN IMMUNOGLOBULIN G
  21. K?TAB [Concomitant]
     Active Substance: POTASSIUM CHLORIDE
  22. AMOXICILLIN. [Concomitant]
     Active Substance: AMOXICILLIN
  23. PREDNISONE. [Concomitant]
     Active Substance: PREDNISONE
  24. HYDROXYZINE HCL [Concomitant]
     Active Substance: HYDROXYZINE HYDROCHLORIDE
  25. FLUTICASONE. [Concomitant]
     Active Substance: FLUTICASONE
  26. ACIDOPHILUS [Concomitant]
     Active Substance: LACTOBACILLUS ACIDOPHILUS
  27. GAMUNEX?C [Concomitant]
     Active Substance: HUMAN IMMUNOGLOBULIN G
  28. OMEPRAZOLE. [Concomitant]
     Active Substance: OMEPRAZOLE
  29. CALCIUM + VITAMIN D                /01817601/ [Concomitant]
     Active Substance: CALCIUM LACTATE\CALCIUM PHOSPHATE\CHOLECALCIFEROL
  30. MAGNESIUM [Concomitant]
     Active Substance: MAGNESIUM
  31. EPIPEN [Concomitant]
     Active Substance: EPINEPHRINE
  32. DEXMETHYLPHENIDATE [Concomitant]
     Active Substance: DEXMETHYLPHENIDATE HYDROCHLORIDE

REACTIONS (1)
  - Respiratory tract infection [Unknown]

NARRATIVE: CASE EVENT DATE: 20180908
